FAERS Safety Report 9498651 (Version 1)
Quarter: 2013Q3

REPORT INFORMATION
  Report Type: Spontaneous
  Country: DE (occurrence: DE)
  Receive Date: 20130904
  Receipt Date: 20130904
  Transmission Date: 20140515
  Serious: Yes (Other)
  Sender: FDA-Public Use
  Company Number: DE-NAPPMUNDI-DEU-2013-0012276

PATIENT
  Sex: Male

DRUGS (6)
  1. PALLADON RETARD [Suspect]
     Indication: PAIN
     Dosage: 4 MG, PM
     Route: 048
     Dates: end: 200810
  2. PALLADON RETARD [Suspect]
     Dosage: 4 MG, BID
     Route: 048
  3. PALLADON RETARD [Suspect]
     Dosage: 4 MG, TID
     Route: 048
  4. PALLADON RETARD [Suspect]
     Dosage: 8 MG, TID
     Route: 048
  5. PALLADON RETARD [Suspect]
     Dosage: 12 MG, TID
     Route: 048
  6. PALLADON RETARD [Suspect]
     Dosage: UNK
     Route: 048

REACTIONS (10)
  - Drug withdrawal syndrome [Unknown]
  - Mania [Unknown]
  - Neuralgia [Unknown]
  - Gastrointestinal hypomotility [Unknown]
  - Tearfulness [Unknown]
  - Depression [Unknown]
  - Constipation [Unknown]
  - Fatigue [Unknown]
  - Decreased appetite [Unknown]
  - Nausea [Unknown]
